FAERS Safety Report 7163978-1 (Version None)
Quarter: 2010Q4

REPORT INFORMATION
  Report Type: 
  Country: None (occurrence: None)
  Receive Date: 20101215
  Receipt Date: 20101203
  Transmission Date: 20110411
  Serious: Yes (Hospitalization)
  Sender: FDA-Public Use
  Company Number: A0790193A

PATIENT
  Age: 52 Year
  Sex: Male
  Weight: 100.9 kg

DRUGS (7)
  1. AVANDIA [Suspect]
     Dosage: 8MG SINGLE DOSE
     Route: 048
     Dates: start: 20041001, end: 20070101
  2. AVANDARYL [Suspect]
     Dosage: 4MG SINGLE DOSE
     Route: 048
     Dates: start: 20070401, end: 20070601
  3. JANUVIA [Concomitant]
  4. LANTUS [Concomitant]
  5. VYTORIN [Concomitant]
  6. PREVACID [Concomitant]
  7. GLYBURIDE [Concomitant]

REACTIONS (4)
  - COMPLEX PARTIAL SEIZURES [None]
  - ISCHAEMIC STROKE [None]
  - POSTICTAL PARALYSIS [None]
  - VISUAL FIELD DEFECT [None]
